FAERS Safety Report 17559332 (Version 2)
Quarter: 2020Q1

REPORT INFORMATION
  Report Type: Report from Study
  Country: DE (occurrence: DE)
  Receive Date: 20200319
  Receipt Date: 20200327
  Transmission Date: 20200409
  Serious: Yes (Death, Hospitalization, Other)
  Sender: FDA-Public Use
  Company Number: DE-BRISTOL-MYERS SQUIBB COMPANY-BMS-2019-126543

PATIENT
  Age: 47 Year
  Sex: Male

DRUGS (2)
  1. IPILIMUMAB [Suspect]
     Active Substance: IPILIMUMAB
     Indication: MALIGNANT MELANOMA
     Dosage: 342 UNSPECIFED UNITS
     Route: 065
     Dates: start: 20190220, end: 20190429
  2. NIVOLUMAB [Suspect]
     Active Substance: NIVOLUMAB
     Indication: MALIGNANT MELANOMA
     Dosage: 240 MILLIGRAM, Q2WK
     Route: 042
     Dates: start: 20190826

REACTIONS (3)
  - Malignant neoplasm progression [Fatal]
  - Hepatic pain [Fatal]
  - Hepatobiliary disease [Unknown]

NARRATIVE: CASE EVENT DATE: 20200309
